FAERS Safety Report 16793211 (Version 1)
Quarter: 2019Q3

REPORT INFORMATION
  Report Type: Report from Study
  Country: None (occurrence: US)
  Receive Date: 20190911
  Receipt Date: 20190911
  Transmission Date: 20191005
  Serious: Yes (Other)
  Sender: FDA-Public Use
  Company Number: US-ABBVIE-19K-163-2916212-00

PATIENT

DRUGS (1)
  1. VENCLEXTA [Suspect]
     Active Substance: VENETOCLAX
     Indication: CHRONIC LYMPHOCYTIC LEUKAEMIA
     Route: 048
     Dates: start: 20190824

REACTIONS (22)
  - Blood potassium decreased [Unknown]
  - Protein total decreased [Unknown]
  - Arthralgia [Unknown]
  - Fatigue [Recovering/Resolving]
  - Sleep disorder [Unknown]
  - Blood lactate dehydrogenase increased [Unknown]
  - Musculoskeletal pain [Unknown]
  - Micrographic skin surgery [Unknown]
  - Basal cell carcinoma [Unknown]
  - Night sweats [Unknown]
  - Abdominal distension [Unknown]
  - Rash pruritic [Unknown]
  - Glomerular filtration rate decreased [Unknown]
  - Chronic sinusitis [Unknown]
  - Blood glucose increased [Unknown]
  - Back pain [Unknown]
  - Skin operation [Unknown]
  - Abdominal discomfort [Unknown]
  - Contusion [Unknown]
  - Myalgia [Unknown]
  - Lymphadenopathy [Recovering/Resolving]
  - Aspartate aminotransferase increased [Unknown]

NARRATIVE: CASE EVENT DATE: 2019
